FAERS Safety Report 18467781 (Version 1)
Quarter: 2020Q4

REPORT INFORMATION
  Report Type: Spontaneous
  Country: US (occurrence: US)
  Receive Date: 20201105
  Receipt Date: 20201105
  Transmission Date: 20210114
  Serious: No
  Sender: FDA-Public Use
  Company Number: US-PFIZER INC-2019434683

PATIENT
  Age: 73 Year
  Sex: Female

DRUGS (3)
  1. IBRANCE [Suspect]
     Active Substance: PALBOCICLIB
     Indication: AGRANULOCYTOSIS
  2. IBRANCE [Suspect]
     Active Substance: PALBOCICLIB
     Indication: METASTASIS
     Dosage: 75 MG, CYCLIC (WITH FOOD ONCE DAILY MONDAY-FRIDAY, OFF SATURDAY AND SUNDAY FOR 3 WEEKS)
     Route: 048
  3. IBRANCE [Suspect]
     Active Substance: PALBOCICLIB
     Indication: BREAST CANCER FEMALE
     Dosage: 100 MG (1 TABLET), CYCLIC (5 DAYS A WEEK FOR 21 DAYS OF 28 DAY CYCLE)
     Route: 048

REACTIONS (1)
  - Neoplasm progression [Unknown]
